FAERS Safety Report 10037915 (Version 2)
Quarter: 2014Q2

REPORT INFORMATION
  Report Type: Spontaneous
  Country: CN (occurrence: CN)
  Receive Date: 20140326
  Receipt Date: 20140602
  Transmission Date: 20141212
  Serious: Yes (Hospitalization)
  Sender: FDA-Public Use
  Company Number: CN-SA-2014SA034963

PATIENT
  Age: 19 Year
  Sex: Female
  Weight: 46 kg

DRUGS (2)
  1. CEREZYME [Suspect]
     Indication: GAUCHER^S DISEASE
     Dosage: DOSE: 3 VIALS PER MONTH
     Route: 042
     Dates: start: 20090908, end: 2013
  2. CEREZYME [Suspect]
     Indication: GAUCHER^S DISEASE
     Dosage: DOSE: 3.5 VIALS PER MONTH
     Route: 042
     Dates: start: 20131218

REACTIONS (5)
  - Femoral neck fracture [Recovering/Resolving]
  - Pain [Recovering/Resolving]
  - Necrosis [Recovering/Resolving]
  - Bone marrow oedema [Recovering/Resolving]
  - Fall [Unknown]
